FAERS Safety Report 7300046-X (Version None)
Quarter: 2011Q1

REPORT INFORMATION
  Report Type: 
  Country: None (occurrence: None)
  Receive Date: 20110208
  Receipt Date: 20110126
  Transmission Date: 20110831
  Serious: Yes (Death)
  Sender: FDA-Public Use
  Company Number: WAES 1101USA02341

PATIENT
  Age: 67 Year
  Sex: Female

DRUGS (10)
  1. NITROGLYCERIN [Concomitant]
  2. VITAMINS (UNSPECIFIED) [Concomitant]
  3. DIOVAN [Concomitant]
  4. PLACEBO [Suspect]
     Indication: ACUTE CORONARY SYNDROME
     Dosage: PO
     Route: 048
     Dates: start: 20070919
  5. OMEPRAZOLE [Concomitant]
  6. VYTORIN [Suspect]
     Indication: ACUTE CORONARY SYNDROME
     Dosage: 10-40 MG/DAILY/PO
     Route: 048
     Dates: start: 20070919
  7. AMBIEN [Concomitant]
  8. FOSAMAX [Concomitant]
  9. ASPIRIN [Concomitant]
  10. GLIMEPIRIDE [Concomitant]

REACTIONS (1)
  - ACUTE LEUKAEMIA [None]
